FAERS Safety Report 7619048-9 (Version None)
Quarter: 2011Q3

REPORT INFORMATION
  Report Type: 
  Country: None (occurrence: None)
  Receive Date: 20110718
  Receipt Date: 20110708
  Transmission Date: 20111222
  Serious: Yes (Other)
  Sender: FDA-Public Use
  Company Number: GB-ASTRAZENECA-2011SE40799

PATIENT
  Age: 34 Year
  Sex: Female
  Weight: 45 kg

DRUGS (14)
  1. OMEPRAZOLE [Concomitant]
     Indication: CYSTIC FIBROSIS
     Route: 065
  2. VITAMIN A AND D CONCENTRATE [Concomitant]
     Indication: CYSTIC FIBROSIS
     Dosage: IN THE MORNING
     Route: 048
  3. MEROPENEM [Suspect]
     Route: 042
  4. HUMULIN S [Concomitant]
     Indication: CYSTIC FIBROSIS
     Dosage: VARIABLE DOSES
     Route: 058
  5. SERETIDE [Concomitant]
     Indication: CYSTIC FIBROSIS
     Dosage: 250 UNKNOWN UNITS, 2 UNITS TWICE A DAY
  6. LANTUS [Concomitant]
     Indication: CYSTIC FIBROSIS
     Dosage: VARIABLE DOSES
     Route: 058
  7. COLISTIN SULFATE [Concomitant]
     Indication: CYSTIC FIBROSIS
     Dosage: 2 MU TWICE A DAY
     Route: 048
  8. MEROPENEM [Suspect]
     Route: 042
     Dates: start: 20110504, end: 20110504
  9. HUMALOG [Concomitant]
     Indication: CYSTIC FIBROSIS
     Dosage: VARIABLE DOSES
     Route: 058
  10. SODIUM CHLORIDE [Concomitant]
     Indication: CYSTIC FIBROSIS
     Dosage: 7 NEBULISER IN THE MORNING
     Route: 055
  11. CREON [Concomitant]
     Indication: CYSTIC FIBROSIS
     Dosage: VARIABLE DOSES
     Route: 048
  12. PULMOZYME [Concomitant]
     Indication: CYSTIC FIBROSIS
     Dosage: 2.5MG IN THE MORNING, FREQUENCY UNKNOWN
     Route: 065
  13. VITAMIN E [Concomitant]
     Indication: CYSTIC FIBROSIS
     Dosage: IN THE MORNING
     Route: 048
  14. IPRAMOL [Concomitant]
     Indication: CYSTIC FIBROSIS
     Dosage: FOUR TIMES A DAY

REACTIONS (4)
  - MALAISE [None]
  - FEELING HOT [None]
  - ERYTHEMA [None]
  - DYSPNOEA [None]
